FAERS Safety Report 12763440 (Version 3)
Quarter: 2017Q4

REPORT INFORMATION
  Report Type: Report from Study
  Country: CO (occurrence: CO)
  Receive Date: 20160920
  Receipt Date: 20171012
  Transmission Date: 20180320
  Serious: Yes (Death, Hospitalization)
  Sender: FDA-Public Use
  Company Number: CO-ASTELLAS-2016US036122

PATIENT
  Age: 58 Year
  Sex: Male

DRUGS (1)
  1. TACROLIMUS. [Suspect]
     Active Substance: TACROLIMUS
     Indication: RENAL TRANSPLANT
     Route: 048
     Dates: start: 20091107

REACTIONS (4)
  - Anaemia [Recovering/Resolving]
  - Inflammation [Recovering/Resolving]
  - Blood creatinine increased [Recovering/Resolving]
  - Death [Fatal]

NARRATIVE: CASE EVENT DATE: 20160908
